FAERS Safety Report 12626294 (Version 7)
Quarter: 2016Q3

REPORT INFORMATION
  Report Type: Report from Study
  Country: NL (occurrence: NL)
  Receive Date: 20160805
  Receipt Date: 20160819
  Transmission Date: 20161109
  Serious: Yes (Hospitalization, Other)
  Sender: FDA-Public Use
  Company Number: NL-ABBVIE-16K-114-1692673-00

PATIENT
  Age: 71 Year
  Sex: Female

DRUGS (8)
  1. DUODOPA [Suspect]
     Active Substance: CARBIDOPA\LEVODOPA
     Indication: PARKINSON^S DISEASE
     Dosage: MORNING DOSE: 5.5 CONTINUOUS DOSE: 4.1, EXTRA DOSE: 2.2, NIGHT DOSE: 2.5
     Route: 050
     Dates: start: 20150401
  2. MADOPAR [Concomitant]
     Active Substance: BENSERAZIDE HYDROCHLORIDE\LEVODOPA
     Indication: PRODUCT USED FOR UNKNOWN INDICATION
  3. DUODOPA [Suspect]
     Active Substance: CARBIDOPA\LEVODOPA
     Dosage: MD:4 ML, CD: 4.3ML, ED 1.7ML, CND:3.1ML, END: 1.7ML
     Route: 050
  4. DUODOPA [Suspect]
     Active Substance: CARBIDOPA\LEVODOPA
     Dosage: MD:4 ML, CD: 4.3ML, ED 1.7ML, CND:2.7ML, END: 1.7ML
     Route: 050
  5. DUODOPA [Suspect]
     Active Substance: CARBIDOPA\LEVODOPA
     Dosage: MD:3.5 ML, CD: 4.3ML, ED 1.7ML, CND:2.9ML, END: 1.7ML
     Route: 050
  6. DUODOPA [Suspect]
     Active Substance: CARBIDOPA\LEVODOPA
     Dosage: CONTINUOUS DOSE REDUCED WITH 0.1, EXTRA DOSE INCREASED WITH 0.2.
     Route: 050
  7. DUODOPA [Suspect]
     Active Substance: CARBIDOPA\LEVODOPA
     Dosage: MORNING DOSE: 4.5 CONTINUOUS DOSE: 4.1, EXTRA DOSE: 2.2, NIGHT DOSE: 2.5
     Route: 050
  8. DUODOPA [Suspect]
     Active Substance: CARBIDOPA\LEVODOPA
     Dosage: MD: 4.0, CD: 4.3-4.5, ED: 1.7 CND: 3.1
     Route: 050

REACTIONS (19)
  - Paraesthesia [Recovering/Resolving]
  - Device dislocation [Recovered/Resolved]
  - Drug ineffective [Not Recovered/Not Resolved]
  - Carpal tunnel syndrome [Not Recovered/Not Resolved]
  - Musculoskeletal stiffness [Recovering/Resolving]
  - Tremor [Recovering/Resolving]
  - Extra dose administered [Not Recovered/Not Resolved]
  - Polyneuropathy [Not Recovered/Not Resolved]
  - Bradykinesia [Recovering/Resolving]
  - Drug effect decreased [Recovered/Resolved]
  - Drug ineffective [Recovered/Resolved]
  - Extra dose administered [Recovered/Resolved]
  - Hyperkinesia [Not Recovered/Not Resolved]
  - Hyperkinesia [Recovering/Resolving]
  - Drug dispensing error [Not Recovered/Not Resolved]
  - Drug administered at inappropriate site [Recovered/Resolved]
  - On and off phenomenon [Not Recovered/Not Resolved]
  - Drug ineffective [Recovered/Resolved]
  - Drug ineffective [Not Recovered/Not Resolved]

NARRATIVE: CASE EVENT DATE: 20160805
